FAERS Safety Report 13368048 (Version 2)
Quarter: 2017Q1

REPORT INFORMATION
  Report Type: Spontaneous
  Country: CH (occurrence: CH)
  Receive Date: 20170324
  Receipt Date: 20170328
  Transmission Date: 20170429
  Serious: Yes (Life-Threatening)
  Sender: FDA-Public Use
  Company Number: CH-JNJFOC-20170323862

PATIENT
  Age: 18 Year
  Sex: Female
  Weight: 70 kg

DRUGS (6)
  1. TRAMADOL HYDROCHLORIDE. [Suspect]
     Active Substance: TRAMADOL HYDROCHLORIDE
     Indication: PROCEDURAL PAIN
     Dosage: 1 DOSAGES
     Route: 048
     Dates: start: 20170316, end: 20170316
  2. RAPIFEN [Suspect]
     Active Substance: ALFENTANIL HYDROCHLORIDE
     Indication: ELECTIVE SURGERY
     Dosage: 1 DOSAGES
     Route: 041
     Dates: start: 20170316, end: 20170316
  3. PERFALGAN [Concomitant]
     Active Substance: ACETAMINOPHEN
     Indication: ELECTIVE SURGERY
     Dosage: 1 DOSAGES
     Route: 041
     Dates: start: 20170316, end: 20170316
  4. TORA-DOL [Concomitant]
     Active Substance: KETOROLAC TROMETHAMINE
     Indication: ELECTIVE SURGERY
     Dosage: 1 DOSAGES
     Route: 041
     Dates: start: 20170316, end: 20170316
  5. MORPHINE HCL [Suspect]
     Active Substance: MORPHINE HYDROCHLORIDE
     Indication: PROCEDURAL PAIN
     Dosage: 1 DOSAGES
     Route: 040
     Dates: start: 20170316, end: 20170316
  6. PROPOFOL. [Concomitant]
     Active Substance: PROPOFOL
     Route: 065
     Dates: start: 20170316, end: 20170316

REACTIONS (4)
  - Oxygen saturation decreased [Recovered/Resolved]
  - Bradypnoea [Recovered/Resolved]
  - Respiratory arrest [Recovered/Resolved]
  - Sedation [Recovered/Resolved]

NARRATIVE: CASE EVENT DATE: 20170316
